FAERS Safety Report 6038171-6 (Version None)
Quarter: 2009Q1

REPORT INFORMATION
  Report Type: 
  Country: None (occurrence: None)
  Receive Date: 20090115
  Receipt Date: 20090107
  Transmission Date: 20090719
  Serious: Yes (Hospitalization, Other)
  Sender: FDA-Public Use
  Company Number: PHHY2008JP28217

PATIENT
  Age: 10 Year
  Sex: Female

DRUGS (12)
  1. GLEEVEC [Suspect]
     Indication: ACUTE LYMPHOCYTIC LEUKAEMIA
     Dosage: 340 MG/M2/DAY
     Route: 048
     Dates: start: 20071017, end: 20080303
  2. GLEEVEC [Suspect]
     Dosage: 340 MG/M2/DAY
     Dates: start: 20080108
  3. GLEEVEC [Suspect]
     Dosage: 340 MG/M2/DAY
     Dates: start: 20080131
  4. GLEEVEC [Suspect]
     Dosage: 340 MG/M2/DAY
     Dates: start: 20080219, end: 20080303
  5. NEORAL [Suspect]
     Indication: CORD BLOOD TRANSPLANT THERAPY
     Dosage: UNK
  6. VINCRISTINE [Concomitant]
     Dosage: 1.2 MG/DAY
  7. CYCLOPHOSPHAMIDE [Concomitant]
     Dosage: 300 MG/M2/DAY
  8. ADRIAMYCIN PFS [Concomitant]
     Dosage: 50 MG/M2/DAY
  9. DEXAMETHASONE TAB [Concomitant]
     Dosage: 20 MG/M2/DAY
  10. METHOTREXATE [Concomitant]
     Dosage: 3 MG/M2, Q12H
  11. ETOPOSIDE [Concomitant]
     Dosage: 60 MG/KG, UNK
  12. CYTARABINE [Concomitant]
     Dosage: 60 MG/KG, UNK

REACTIONS (3)
  - ACUTE GRAFT VERSUS HOST DISEASE IN SKIN [None]
  - CYTOMEGALOVIRUS ANTIGEN POSITIVE [None]
  - ENGRAFTMENT SYNDROME [None]
